FAERS Safety Report 4645551-X (Version None)
Quarter: 2005Q2

REPORT INFORMATION
  Report Type: 
  Country: None (occurrence: None)
  Receive Date: 20050425
  Receipt Date: 20050413
  Transmission Date: 20051028
  Serious: Yes (Death, Life-Threatening)
  Sender: FDA-Public Use
  Company Number: 2005060463

PATIENT
  Age: 67 Year
  Sex: Male

DRUGS (2)
  1. VIAGRA [Suspect]
     Indication: ILL-DEFINED DISORDER
  2. NITROGLYCERIN [Suspect]
     Indication: CORONARY ARTERY DISEASE

REACTIONS (1)
  - DRUG INTERACTION [None]
